FAERS Safety Report 21414746 (Version 1)
Quarter: 2022Q4

REPORT INFORMATION
  Report Type: Spontaneous
  Country: NO (occurrence: NO)
  Receive Date: 20221006
  Receipt Date: 20221006
  Transmission Date: 20230112
  Serious: Yes (Hospitalization, Other)
  Sender: FDA-Public Use
  Company Number: NO-SUN PHARMACEUTICAL INDUSTRIES LTD-2022R1-355987

PATIENT
  Age: 44 Year
  Sex: Male

DRUGS (1)
  1. METHADONE [Suspect]
     Active Substance: METHADONE HYDROCHLORIDE
     Indication: Substance use disorder
     Dosage: 80 MILLIGRAM, DAILY
     Route: 065

REACTIONS (4)
  - Multiple organ dysfunction syndrome [Recovering/Resolving]
  - Septic shock [Recovering/Resolving]
  - Overdose [Unknown]
  - Drug level increased [Recovering/Resolving]
